FAERS Safety Report 16555979 (Version 2)
Quarter: 2019Q3

REPORT INFORMATION
  Report Type: Spontaneous
  Country: US (occurrence: US)
  Receive Date: 20190710
  Receipt Date: 20190810
  Transmission Date: 20191004
  Serious: No
  Sender: FDA-Public Use
  Company Number: US-009507513-1907USA003794

PATIENT
  Age: 37 Year
  Sex: Male

DRUGS (2)
  1. EVOLOCUMAB [Suspect]
     Active Substance: EVOLOCUMAB
     Indication: TYPE III HYPERLIPIDAEMIA
     Dosage: 140 MILLIGRAM, EVERY 2 WEEKS
     Route: 058
  2. ZETIA [Suspect]
     Active Substance: EZETIMIBE
     Indication: TYPE III HYPERLIPIDAEMIA
     Dosage: 10 MILLIGRAM, DAILY
     Route: 048

REACTIONS (3)
  - No adverse event [Unknown]
  - Drug effective for unapproved indication [Unknown]
  - Product use in unapproved indication [Unknown]
